FAERS Safety Report 19775113 (Version 4)
Quarter: 2021Q3

REPORT INFORMATION
  Report Type: Spontaneous
  Country: JP (occurrence: JP)
  Receive Date: 20210901
  Receipt Date: 20210930
  Transmission Date: 20211014
  Serious: Yes (Hospitalization)
  Sender: FDA-Public Use
  Company Number: JP-ORGANON-O2108JPN002447

PATIENT
  Age: 50 Year
  Sex: Male

DRUGS (4)
  1. LASVIC [Suspect]
     Active Substance: LASCUFLOXACIN HYDROCHLORIDE
     Indication: TONSILLITIS
     Dosage: 75 MG QD
     Route: 065
     Dates: start: 20210805, end: 20210809
  2. MUCOSAL [AMBROXOL HYDROCHLORIDE] [Suspect]
     Active Substance: AMBROXOL HYDROCHLORIDE
     Indication: TONSILLITIS
     Dosage: 15 MILLIGRAM, TID
     Route: 065
     Dates: start: 20210805, end: 20210809
  3. MONTELUKAST SODIUM. [Suspect]
     Active Substance: MONTELUKAST SODIUM
     Indication: TONSILLITIS
     Dosage: 10 MG QD
     Route: 065
     Dates: start: 20210805, end: 20210809
  4. TRANSAMIN [Suspect]
     Active Substance: TRANEXAMIC ACID
     Indication: TONSILLITIS
     Dosage: 250 MG
     Route: 065
     Dates: start: 20210805, end: 20210809

REACTIONS (1)
  - Drug-induced liver injury [Not Recovered/Not Resolved]

NARRATIVE: CASE EVENT DATE: 202108
